FAERS Safety Report 17577467 (Version 1)
Quarter: 2020Q1

REPORT INFORMATION
  Report Type: Spontaneous
  Country: US (occurrence: US)
  Receive Date: 20200324
  Receipt Date: 20200324
  Transmission Date: 20200409
  Serious: No
  Sender: FDA-Public Use
  Company Number: US-PERRIGO-19US005292

PATIENT
  Age: 82 Year
  Sex: Male
  Weight: 90.7 kg

DRUGS (1)
  1. FAMOTIDINE, CALCIUM CARBONATE, AND MAGNESIUM HYDROXIDE [Suspect]
     Active Substance: CALCIUM CARBONATE\FAMOTIDINE\MAGNESIUM HYDROXIDE
     Indication: DYSPEPSIA
     Dosage: 1 TABLET, SINGLE
     Route: 048
     Dates: start: 20190423, end: 20190423

REACTIONS (2)
  - Toothache [Recovered/Resolved]
  - Tooth fracture [Recovered/Resolved with Sequelae]

NARRATIVE: CASE EVENT DATE: 20190423
